FAERS Safety Report 6219044-2 (Version None)
Quarter: 2009Q2

REPORT INFORMATION
  Report Type: 
  Country: None (occurrence: None)
  Receive Date: 20090608
  Receipt Date: 20090527
  Transmission Date: 20091009
  Serious: Yes (Other)
  Sender: FDA-Public Use
  Company Number: ZA-PFIZER INC-2009220907

PATIENT

DRUGS (6)
  1. TENORETIC 100 [Suspect]
  2. CARDURA [Suspect]
     Indication: BLOOD PRESSURE
     Dosage: UNIT DOSE: UNK; FREQUENCY: UNK, UNK;
     Route: 048
  3. ADALAT [Suspect]
  4. TENCHLOR ^LENNON^ [Suspect]
  5. BRINERDIN ^NOVARTIS^ [Suspect]
  6. LORATADINE [Concomitant]

REACTIONS (5)
  - HYPERSENSITIVITY [None]
  - PHARYNGEAL OEDEMA [None]
  - RASH GENERALISED [None]
  - SWELLING [None]
  - URTICARIA [None]
